FAERS Safety Report 8440165-8 (Version None)
Quarter: 2012Q2

REPORT INFORMATION
  Report Type: 
  Country: None (occurrence: None)
  Receive Date: 20120608
  Receipt Date: 20120601
  Transmission Date: 20120825
  Serious: Yes (Hospitalization, Other)
  Sender: FDA-Public Use
  Company Number: AUR-APL-2012-02488

PATIENT
  Age: 63 Year
  Sex: Male

DRUGS (5)
  1. METFFORMIN HYDROCHLORIDE [Suspect]
     Indication: DIABETES MELLITUS
     Dosage: 1000 MG (500 MG, 2 IN 1 D),
  2. BENDROFLUAZIDE [Concomitant]
  3. DOXAZOCIN (DOXAZOSIN MESILATE) [Concomitant]
  4. NICARDIPINE HCL [Concomitant]
  5. SIMVASTATIN [Concomitant]

REACTIONS (5)
  - MULTI-ORGAN FAILURE [None]
  - LACTIC ACIDOSIS [None]
  - METASTASES TO LIVER [None]
  - METABOLIC ACIDOSIS [None]
  - BLOOD GLUCOSE INCREASED [None]
